FAERS Safety Report 7955342-X (Version None)
Quarter: 2011Q4

REPORT INFORMATION
  Report Type: 
  Country: None (occurrence: None)
  Receive Date: 20111202
  Receipt Date: 20111121
  Transmission Date: 20120403
  Serious: Yes (Other)
  Sender: FDA-Public Use
  Company Number: US-ELI_LILLY_AND_COMPANY-US201006001041

PATIENT
  Sex: Female
  Weight: 128.4 kg

DRUGS (4)
  1. FORTEO [Suspect]
     Indication: OSTEOPOROSIS
     Dosage: 20 UG, DAILY (1/D)
     Route: 058
     Dates: start: 20100525, end: 20101101
  2. FORTEO [Suspect]
     Dosage: 20 UG, DAILY (1/D)
     Route: 058
     Dates: start: 20110401
  3. IBUPROFEN [Concomitant]
  4. FORTEO [Suspect]
     Dosage: 20 UG, QD
     Route: 058

REACTIONS (10)
  - CARBON DIOXIDE INCREASED [None]
  - BLOOD GLUCOSE INCREASED [None]
  - DENTAL CARE [None]
  - HEPATIC NEOPLASM MALIGNANT [None]
  - BLOOD ALKALINE PHOSPHATASE INCREASED [None]
  - BLOOD UREA INCREASED [None]
  - LABORATORY TEST ABNORMAL [None]
  - ANION GAP INCREASED [None]
  - NASAL CONGESTION [None]
  - BLOOD CALCIUM INCREASED [None]
